FAERS Safety Report 20212336 (Version 1)
Quarter: 2021Q4

REPORT INFORMATION
  Report Type: Spontaneous
  Country: CL (occurrence: CL)
  Receive Date: 20211221
  Receipt Date: 20211221
  Transmission Date: 20220303
  Serious: Yes (Hospitalization, Other)
  Sender: FDA-Public Use
  Company Number: CL-AMGEN-CHLSP2021199234

PATIENT
  Age: 23 Year
  Sex: Female

DRUGS (9)
  1. CINACALCET HYDROCHLORIDE [Suspect]
     Active Substance: CINACALCET HYDROCHLORIDE
     Indication: Hyperparathyroidism secondary
     Dosage: 60 MILLIGRAM, QD
     Route: 065
     Dates: start: 2021
  2. CALCITRIOL [Concomitant]
     Active Substance: CALCITRIOL
     Dosage: 1.5 MILLIGRAM, QD
     Route: 048
  3. CALCITRIOL [Concomitant]
     Active Substance: CALCITRIOL
     Dosage: 0.5 MICROGRAM, QD
  4. SEVELAMER [Concomitant]
     Active Substance: SEVELAMER
     Dosage: 7200 MILLIGRAM, QD
  5. ERYTHROPOIETIN [Concomitant]
     Active Substance: ERYTHROPOIETIN
     Dosage: 8000 UNIT, QWK
  6. CALCIUM [Concomitant]
     Active Substance: CALCIUM
     Dosage: 2.5 MEQ/L
     Route: 042
  7. CALCIUM [Concomitant]
     Active Substance: CALCIUM
     Dosage: UNK
     Route: 048
  8. CALCIUM CARBONATE [Concomitant]
     Active Substance: CALCIUM CARBONATE
     Dosage: 4 GRAM, QD
  9. CALCIUM CARBONATE [Concomitant]
     Active Substance: CALCIUM CARBONATE
     Dosage: 6 UNK

REACTIONS (5)
  - Hungry bone syndrome [Unknown]
  - Vascular calcification [Recovered/Resolved]
  - Parathyroid hyperplasia [Unknown]
  - Calcinosis [Unknown]
  - Hyperphosphataemia [Unknown]

NARRATIVE: CASE EVENT DATE: 20210101
